FAERS Safety Report 5569737-5 (Version None)
Quarter: 2007Q4

REPORT INFORMATION
  Report Type: 
  Country: None (occurrence: None)
  Receive Date: 20071217
  Receipt Date: 20071204
  Transmission Date: 20080405
  Serious: Yes (Other)
  Sender: FDA-Public Use
  Company Number: B0499581A

PATIENT
  Age: 37 Year
  Sex: Male

DRUGS (3)
  1. DOXYCYCLINE [Suspect]
     Indication: LUNG INFECTION
  2. AMOXICILLIN TRIHYDRATE [Suspect]
     Dates: start: 20010101
  3. PREDNISONE TAB [Concomitant]

REACTIONS (2)
  - HEPATITIS [None]
  - SARCOIDOSIS [None]
